FAERS Safety Report 9859212 (Version 2)
Quarter: 2014Q1

REPORT INFORMATION
  Report Type: Report from Study
  Country: CA (occurrence: CA)
  Receive Date: 20140131
  Receipt Date: 20140131
  Transmission Date: 20141002
  Serious: Yes (Death)
  Sender: FDA-Public Use
  Company Number: CA-BRISTOL-MYERS SQUIBB COMPANY-19639343

PATIENT
  Age: 81 Year
  Sex: Female

DRUGS (9)
  1. ORENCIA [Suspect]
     Indication: RHEUMATOID ARTHRITIS
     Dosage: 1DF:500 UNIT NOS?ALSO ON 08DEC09?EXP DATE:JUL2016
     Dates: start: 20091015, end: 20131227
  2. ASAPHEN [Concomitant]
  3. ALENDRONATE [Concomitant]
  4. LIPITOR [Concomitant]
  5. CARBOCAL [Concomitant]
  6. SYNTHROID [Concomitant]
  7. OXAZEPAM [Concomitant]
  8. CORTISONE [Concomitant]
  9. PLAQUENIL [Concomitant]

REACTIONS (4)
  - Death [Fatal]
  - Chest pain [Unknown]
  - Dyspnoea [Unknown]
  - Productive cough [Unknown]
